FAERS Safety Report 8384157-6 (Version None)
Quarter: 2012Q2

REPORT INFORMATION
  Report Type: 
  Country: None (occurrence: None)
  Receive Date: 20120524
  Receipt Date: 20120514
  Transmission Date: 20120825
  Serious: Yes (Other)
  Sender: FDA-Public Use
  Company Number: US-ROCHE-1069556

PATIENT

DRUGS (4)
  1. IRINOTECAN HYDROCHLORIDE [Suspect]
     Indication: MALIGNANT GLIOMA
  2. LOMUSTINE [Suspect]
     Indication: MALIGNANT GLIOMA
  3. AVASTIN [Suspect]
     Indication: MALIGNANT GLIOMA
  4. ETOPOSIDE [Suspect]
     Indication: MALIGNANT GLIOMA

REACTIONS (2)
  - NEUROLOGICAL SYMPTOM [None]
  - CONVULSION [None]
